FAERS Safety Report 9160615 (Version 1)
Quarter: 2013Q1

REPORT INFORMATION
  Report Type: Spontaneous
  Country: US (occurrence: US)
  Receive Date: 20130313
  Receipt Date: 20130313
  Transmission Date: 20140127
  Serious: No
  Sender: FDA-Public Use
  Company Number: US-ABBOTT-12P-163-1022898-00

PATIENT
  Sex: 0

DRUGS (3)
  1. DEPAKOTE [Suspect]
     Indication: CONVULSION
     Dates: start: 2008
  2. DEPAKOTE [Suspect]
     Indication: BIPOLAR DISORDER
  3. DEPAKOTE [Suspect]
     Indication: MIGRAINE
     Dates: end: 201203

REACTIONS (2)
  - Periodontal disease [Unknown]
  - Tooth abscess [Unknown]
